FAERS Safety Report 4549738-6 (Version None)
Quarter: 2004Q4

REPORT INFORMATION
  Report Type: 
  Country: None (occurrence: None)
  Receive Date: 20041227
  Receipt Date: 20041105
  Transmission Date: 20050328
  Serious: No
  Sender: FDA-Public Use
  Company Number: 04P-163-0279824-00

PATIENT
  Age: 75 Year
  Sex: Female
  Weight: 52.1637 kg

DRUGS (12)
  1. HUMIRA [Suspect]
     Indication: RHEUMATOID ARTHRITIS
     Dosage: 40 MG, 1 IN 2 WK, SUBCUTANEOUS
     Route: 058
     Dates: start: 20040817, end: 20041012
  2. PREDNISONE [Concomitant]
  3. LEVOTHYROXINE SODIUM [Concomitant]
  4. METOCLOPRAMIDE [Concomitant]
  5. TOPAL [Concomitant]
  6. PANTOPRAZOLE [Concomitant]
  7. LEXAPRO [Concomitant]
  8. RAMIPRIL [Concomitant]
  9. ALPRAZOLAM [Concomitant]
  10. ESTROGENS CONJUGATED [Concomitant]
  11. HYDROXYCHLOROQUINE PHOSPHATE [Concomitant]
  12. ARTHROTEC [Concomitant]

REACTIONS (1)
  - RASH [None]
